FAERS Safety Report 10189238 (Version 1)
Quarter: 2014Q2

REPORT INFORMATION
  Report Type: Spontaneous
  Country: DE (occurrence: DE)
  Receive Date: 20140522
  Receipt Date: 20140522
  Transmission Date: 20141212
  Serious: Yes (Congenital Anomaly)
  Sender: FDA-Public Use
  Company Number: GXKR2014DE001964

PATIENT
  Sex: 0

DRUGS (5)
  1. CIPROFLOXACIN [Suspect]
     Indication: PYELONEPHRITIS
     Dosage: 200 [MG/D ]
     Route: 064
     Dates: start: 20130418, end: 20130425
  2. KEPINOL [Suspect]
     Indication: PYELONEPHRITIS
     Dosage: UNK UKN, UNK
     Route: 064
     Dates: start: 20130415, end: 20130417
  3. CITALOPRAM [Concomitant]
     Indication: DEPRESSION
     Dosage: 20 [MG/D ]
     Route: 064
     Dates: start: 20130715, end: 20130820
  4. AMOXICILLIN [Concomitant]
     Indication: OTITIS MEDIA
     Dosage: 2250 [MG/D ]
     Route: 064
     Dates: start: 20130805, end: 20130819
  5. FOLSAEURE [Concomitant]
     Indication: PROPHYLAXIS OF NEURAL TUBE DEFECT
     Dosage: UNK UKN, UNK
     Route: 064
     Dates: start: 20130506, end: 20130816

REACTIONS (1)
  - Spina bifida [Not Recovered/Not Resolved]
